FAERS Safety Report 14239650 (Version 1)
Quarter: 2017Q4

REPORT INFORMATION
  Report Type: Spontaneous
  Country: US (occurrence: US)
  Receive Date: 20171130
  Receipt Date: 20171130
  Transmission Date: 20180321
  Serious: No
  Sender: FDA-Public Use
  Company Number: US-GLAXOSMITHKLINE-US2017181493

PATIENT
  Sex: Female

DRUGS (4)
  1. ITRACONAZOLE. [Concomitant]
     Active Substance: ITRACONAZOLE
  2. BREO ELLIPTA [Suspect]
     Active Substance: FLUTICASONE FUROATE\VILANTEROL TRIFENATATE
     Indication: COUGH
     Dosage: 1 PUFF(S), QD
     Route: 055
     Dates: start: 20171016
  3. CEFDINIR. [Concomitant]
     Active Substance: CEFDINIR
  4. PREDNISONE. [Concomitant]
     Active Substance: PREDNISONE

REACTIONS (5)
  - Product use in unapproved indication [Unknown]
  - Lip dry [Unknown]
  - Cough [Unknown]
  - Off label use [Unknown]
  - Dry mouth [Unknown]
